FAERS Safety Report 17339950 (Version 1)
Quarter: 2020Q1

REPORT INFORMATION
  Report Type: Spontaneous
  Country: US (occurrence: US)
  Receive Date: 20200129
  Receipt Date: 20200129
  Transmission Date: 20200409
  Serious: No
  Sender: FDA-Public Use
  Company Number: US-ALLERGAN-1921972US

PATIENT
  Sex: Female
  Weight: 99.77 kg

DRUGS (1)
  1. BOTOX [Suspect]
     Active Substance: ONABOTULINUMTOXINA
     Indication: MIGRAINE
     Dosage: 190 UNITS, SINGLE
     Dates: start: 20190424, end: 20190424

REACTIONS (1)
  - Injection site reaction [Unknown]
